FAERS Safety Report 10060608 (Version 2)
Quarter: 2014Q2

REPORT INFORMATION
  Report Type: Spontaneous
  Country: FR (occurrence: FR)
  Receive Date: 20140404
  Receipt Date: 20140404
  Transmission Date: 20141212
  Serious: Yes (Hospitalization)
  Sender: FDA-Public Use
  Company Number: FR-PFIZER INC-2014090022

PATIENT
  Age: 33 Year
  Sex: Female

DRUGS (7)
  1. SULFASALAZINE [Suspect]
     Indication: RHEUMATOID ARTHRITIS
  2. CELECOXIB [Suspect]
     Indication: RHEUMATOID ARTHRITIS
  3. DICLOFENAC [Concomitant]
  4. KETOPROFEN [Concomitant]
  5. PARACETAMOL [Concomitant]
  6. IBUPROFEN [Concomitant]
  7. PIROXICAM [Concomitant]

REACTIONS (2)
  - Drug reaction with eosinophilia and systemic symptoms [Recovered/Resolved]
  - Drug hypersensitivity [Recovered/Resolved]
